FAERS Safety Report 18123456 (Version 1)
Quarter: 2020Q3

REPORT INFORMATION
  Report Type: Spontaneous
  Country: PT (occurrence: PT)
  Receive Date: 20200807
  Receipt Date: 20200807
  Transmission Date: 20201103
  Serious: Yes (Hospitalization, Other)
  Sender: FDA-Public Use
  Company Number: PT-GLAXOSMITHKLINE-PT2020152907

PATIENT
  Age: 58 Year
  Sex: Female

DRUGS (8)
  1. ZONEGRAN [Interacting]
     Active Substance: ZONISAMIDE
     Indication: SEIZURE
     Dosage: 200 MG, 1X/DAY
     Route: 048
     Dates: start: 200812, end: 2008
  2. ARICEPT [Interacting]
     Active Substance: DONEPEZIL HYDROCHLORIDE
     Indication: PRODUCT USED FOR UNKNOWN INDICATION
     Dosage: 10 MG, 1X/DAY
     Route: 048
     Dates: start: 2008
  3. LAMOTRIGINE. [Interacting]
     Active Substance: LAMOTRIGINE
     Indication: SEIZURE
     Dosage: UNK
     Route: 065
  4. ZONEGRAN [Interacting]
     Active Substance: ZONISAMIDE
     Dosage: 100 MG, QD
     Route: 048
     Dates: start: 200812, end: 200812
  5. LAMOTRIGINE. [Suspect]
     Active Substance: LAMOTRIGINE
     Dosage: 400 MG, QD 15?JAN?2009
     Route: 065
     Dates: start: 200812, end: 20090115
  6. OXCARBAMAZEPINE [Interacting]
     Active Substance: OXCARBAZEPINE
     Dosage: 300 MG, QD
     Route: 065
     Dates: start: 200812, end: 20090105
  7. ZONEGRAN [Interacting]
     Active Substance: ZONISAMIDE
     Dosage: 100 MG, QD
     Route: 048
     Dates: start: 200812, end: 20090103
  8. OXCARBAMAZEPINE [Interacting]
     Active Substance: OXCARBAZEPINE
     Indication: SEIZURE
     Dosage: UNK
     Route: 065

REACTIONS (4)
  - Abdominal pain upper [Unknown]
  - Cholestasis [Recovering/Resolving]
  - Urticaria [Recovering/Resolving]
  - Drug interaction [Unknown]

NARRATIVE: CASE EVENT DATE: 200812
